FAERS Safety Report 10257724 (Version 2)
Quarter: 2014Q3

REPORT INFORMATION
  Report Type: Spontaneous
  Country: AU (occurrence: AU)
  Receive Date: 20140625
  Receipt Date: 20140711
  Transmission Date: 20150326
  Serious: Yes (Hospitalization, Other)
  Sender: FDA-Public Use
  Company Number: AU-SA-2014SA082189

PATIENT
  Age: 68 Year
  Sex: Female

DRUGS (8)
  1. INDAPAMIDE. [Suspect]
     Active Substance: INDAPAMIDE
     Indication: HYPERTENSION
     Route: 065
  2. AMLODIPINE [Suspect]
     Active Substance: AMLODIPINE BESYLATE
     Indication: HYPERTENSION
     Route: 065
  3. SODIUM PICOSULFATE [Suspect]
     Active Substance: SODIUM PICOSULFATE
     Indication: BOWEL PREPARATION
     Route: 065
  4. IRBESARTAN. [Suspect]
     Active Substance: IRBESARTAN
     Indication: HYPERTENSION
     Route: 065
  5. MELOXICAM. [Suspect]
     Active Substance: MELOXICAM
     Indication: PRODUCT USED FOR UNKNOWN INDICATION
     Route: 065
  6. METFORMIN [Suspect]
     Active Substance: METFORMIN HYDROCHLORIDE
     Indication: TYPE 2 DIABETES MELLITUS
     Route: 065
  7. ISOPHANE INSULIN [Suspect]
     Active Substance: INSULIN NOS
     Indication: TYPE 2 DIABETES MELLITUS
     Route: 065
  8. GLICLAZIDE [Suspect]
     Active Substance: GLICLAZIDE
     Indication: TYPE 2 DIABETES MELLITUS
     Route: 065

REACTIONS (15)
  - Vomiting [Recovered/Resolved]
  - Diarrhoea [Recovered/Resolved]
  - Blood chloride decreased [Recovered/Resolved]
  - PCO2 decreased [Recovered/Resolved]
  - Renal failure acute [Recovering/Resolving]
  - Blood bicarbonate decreased [Recovered/Resolved]
  - PO2 increased [Recovered/Resolved]
  - Lactic acidosis [Recovered/Resolved]
  - Off label use [Unknown]
  - Large intestine polyp [Recovered/Resolved]
  - Blood pH decreased [Recovered/Resolved]
  - Blood creatinine increased [Recovering/Resolving]
  - Blood lactic acid increased [Recovered/Resolved]
  - Oliguria [Recovering/Resolving]
  - Base excess decreased [Recovered/Resolved]
